FAERS Safety Report 18432412 (Version 2)
Quarter: 2020Q4

REPORT INFORMATION
  Report Type: Spontaneous
  Country: AR (occurrence: AR)
  Receive Date: 20201027
  Receipt Date: 20201111
  Transmission Date: 20210114
  Serious: Yes (Hospitalization, Other)
  Sender: FDA-Public Use
  Company Number: AR-PFIZER INC-2020414720

PATIENT
  Age: 63 Year
  Sex: Female

DRUGS (3)
  1. IBANDRONATO [Concomitant]
     Dosage: UNK
     Dates: start: 2018
  2. GADOFEROL [Concomitant]
     Dosage: UNK
     Dates: start: 2018
  3. XELJANZ [Suspect]
     Active Substance: TOFACITINIB CITRATE
     Indication: RHEUMATOID ARTHRITIS
     Dosage: 5 MG, 2X/DAY
     Dates: start: 20160801

REACTIONS (13)
  - Condition aggravated [Unknown]
  - Nipple pain [Unknown]
  - Inflammation [Unknown]
  - Dyspnoea [Not Recovered/Not Resolved]
  - Memory impairment [Unknown]
  - Confusional state [Unknown]
  - Pulmonary function test abnormal [Unknown]
  - Renal impairment [Unknown]
  - Visual impairment [Unknown]
  - Loss of personal independence in daily activities [Unknown]
  - Stress [Unknown]
  - Emotional distress [Unknown]
  - Conversion disorder [Unknown]
